FAERS Safety Report 19404301 (Version 1)
Quarter: 2021Q2

REPORT INFORMATION
  Report Type: Spontaneous
  Country: US (occurrence: US)
  Receive Date: 20210611
  Receipt Date: 20210611
  Transmission Date: 20210717
  Serious: Yes (Hospitalization)
  Sender: FDA-Public Use
  Company Number: None

PATIENT
  Age: 78 Year
  Sex: Male
  Weight: 66.9 kg

DRUGS (1)
  1. ERBITUX [Suspect]
     Active Substance: CETUXIMAB
     Dates: end: 20210520

REACTIONS (7)
  - Dry mouth [None]
  - Dehydration [None]
  - Dysphagia [None]
  - Asthenia [None]
  - Fatigue [None]
  - Productive cough [None]
  - Hypernatraemia [None]

NARRATIVE: CASE EVENT DATE: 20210520
